FAERS Safety Report 6882996-1 (Version None)
Quarter: 2010Q3

REPORT INFORMATION
  Report Type: 
  Country: None (occurrence: None)
  Receive Date: 20100727
  Receipt Date: 20100722
  Transmission Date: 20110219
  Serious: Yes (Other)
  Sender: FDA-Public Use
  Company Number: FR-AMGEN-QUU418399

PATIENT
  Sex: Female
  Weight: 67 kg

DRUGS (3)
  1. NPLATE [Suspect]
     Indication: IDIOPATHIC THROMBOCYTOPENIC PURPURA
     Dates: start: 20100305
  2. IMMU-G [Concomitant]
     Dates: start: 20100301, end: 20100308
  3. CORTICOSTEROIDS [Concomitant]
     Dates: start: 20100301, end: 20100308

REACTIONS (3)
  - CONTUSION [None]
  - MUCOSAL HAEMORRHAGE [None]
  - PLATELET COUNT DECREASED [None]
